FAERS Safety Report 5295285-6 (Version None)
Quarter: 2007Q2

REPORT INFORMATION
  Report Type: 
  Country: None (occurrence: None)
  Receive Date: 20070412
  Receipt Date: 20070405
  Transmission Date: 20071010
  Serious: Yes (Hospitalization)
  Sender: FDA-Public Use
  Company Number: IT-ABBOTT-07P-083-0364546-01

PATIENT
  Sex: Female
  Weight: 50 kg

DRUGS (10)
  1. HUMIRA [Suspect]
     Indication: RHEUMATOID ARTHRITIS
     Route: 058
     Dates: start: 20050511, end: 20060101
  2. COMMERCIAL HUMIRA [Concomitant]
     Indication: RHEUMATOID ARTHRITIS
     Dates: start: 20040826
  3. METHOTREXATE SODIUM [Concomitant]
     Indication: RHEUMATOID ARTHRITIS
     Dosage: 2.5 MG 8 CAPS
  4. FOLINE [Concomitant]
     Indication: RHEUMATOID ARTHRITIS
  5. CELECOXIB [Concomitant]
     Indication: RHEUMATOID ARTHRITIS
  6. CHLORPHENIRAMINE MALEATE [Concomitant]
     Indication: LEUKOCYTOCLASTIC VASCULITIS
     Dates: start: 20070201
  7. METHYLPREDNISOLONE 16MG TAB [Concomitant]
     Indication: LEUKOCYTOCLASTIC VASCULITIS
     Dates: start: 20070201
  8. LEFLUNOMIDE [Concomitant]
     Indication: RHEUMATOID ARTHRITIS
     Dates: start: 20070201
  9. RISEDRONATE SODIUM [Concomitant]
     Indication: RHEUMATOID ARTHRITIS
  10. LOCIT D3 [Concomitant]
     Indication: RHEUMATOID ARTHRITIS

REACTIONS (1)
  - LEUKOCYTOCLASTIC VASCULITIS [None]
